FAERS Safety Report 12800672 (Version 2)
Quarter: 2016Q4

REPORT INFORMATION
  Report Type: Spontaneous
  Country: US (occurrence: US)
  Receive Date: 20161001
  Receipt Date: 20161018
  Transmission Date: 20170207
  Serious: Yes (Hospitalization, Other)
  Sender: FDA-Public Use
  Company Number: US-TAKEDA-2016MPI008418

PATIENT
  Age: 80 Year
  Sex: Male
  Weight: 62.13 kg

DRUGS (1)
  1. NINLARO [Suspect]
     Active Substance: IXAZOMIB
     Indication: PLASMA CELL MYELOMA
     Dosage: 4 MG, UNK
     Route: 048
     Dates: start: 20160708

REACTIONS (4)
  - Hypotension [Unknown]
  - Dementia [Unknown]
  - Sepsis [Unknown]
  - Hallucination [Unknown]

NARRATIVE: CASE EVENT DATE: 20160926
